FAERS Safety Report 4798100-X (Version None)
Quarter: 2005Q4

REPORT INFORMATION
  Report Type: 
  Country: None (occurrence: None)
  Receive Date: 20051012
  Receipt Date: 20051012
  Transmission Date: 20060501
  Serious: Yes (Hospitalization)
  Sender: FDA-Public Use
  Company Number: None

PATIENT
  Sex: Female
  Weight: 54.4316 kg

DRUGS (7)
  1. XANAX [Suspect]
     Dosage: PO [PRIOR TO ADMISSION]
     Route: 048
  2. GEMZAR [Concomitant]
  3. NAVELBINE [Concomitant]
  4. AMBIEN [Concomitant]
  5. FOLGARD [Concomitant]
  6. NEULASTA [Concomitant]
  7. COMPAZINE [Concomitant]

REACTIONS (5)
  - COMA [None]
  - INCORRECT DOSE ADMINISTERED [None]
  - LETHARGY [None]
  - PLEURAL EFFUSION [None]
  - RESPIRATORY ACIDOSIS [None]
